FAERS Safety Report 9264309 (Version 3)
Quarter: 2014Q2

REPORT INFORMATION
  Report Type: Report from Study
  Country: CA (occurrence: CA)
  Receive Date: 20130430
  Receipt Date: 20140529
  Transmission Date: 20141212
  Serious: Yes (Hospitalization, Other)
  Sender: FDA-Public Use
  Company Number: CA-ELI_LILLY_AND_COMPANY-CA201304005916

PATIENT
  Age: 73 Year
  Sex: Female
  Weight: 81 kg

DRUGS (17)
  1. TERIPARATIDE [Suspect]
     Indication: OSTEOPOROSIS
     Dosage: 20 UG, QD
     Route: 058
     Dates: start: 20120916
  2. TERIPARATIDE [Suspect]
     Dosage: 20 UG, QD
     Route: 058
  3. SENOKOT [Concomitant]
     Dosage: UNK, UNKNOWN
     Route: 065
  4. METAMUCIL [Concomitant]
     Dosage: UNK, UNKNOWN
     Route: 065
  5. DOCUSATE SODIUM [Concomitant]
     Dosage: UNK, UNKNOWN
     Route: 065
  6. BISOPROLOL [Concomitant]
     Dosage: UNK, UNKNOWN
     Route: 065
  7. EZETROL [Concomitant]
     Dosage: UNK, UNKNOWN
     Route: 065
  8. RANITIDINE [Concomitant]
     Dosage: UNK, UNKNOWN
     Route: 065
  9. BUSCOPAN [Concomitant]
     Dosage: UNK, UNKNOWN
     Route: 065
  10. ADVIL                              /00109201/ [Concomitant]
     Dosage: UNK, UNKNOWN
     Route: 065
  11. MULTIVITAMIN                       /00097801/ [Concomitant]
     Dosage: UNK, UNKNOWN
     Route: 065
  12. VITAMIN D [Concomitant]
     Dosage: UNK, UNKNOWN
     Route: 065
  13. LUTIN [Concomitant]
     Dosage: UNK, UNKNOWN
     Route: 065
  14. CRANBERRY [Concomitant]
     Dosage: UNK, UNKNOWN
     Route: 065
  15. OMEGA 3 [Concomitant]
     Dosage: UNK, UNKNOWN
     Route: 065
  16. ACIDOPHILUS [Concomitant]
     Dosage: UNK, UNKNOWN
     Route: 065
  17. RABEPRAZOLE [Concomitant]

REACTIONS (2)
  - Gastric volvulus [Recovered/Resolved]
  - Thrombosis [Not Recovered/Not Resolved]
